FAERS Safety Report 7394366-0 (Version None)
Quarter: 2011Q2

REPORT INFORMATION
  Report Type: 
  Country: None (occurrence: None)
  Receive Date: 20110405
  Receipt Date: 20110323
  Transmission Date: 20111010
  Serious: Yes (Hospitalization, Disabling, Other)
  Sender: FDA-Public Use
  Company Number: US-ELI_LILLY_AND_COMPANY-US201103008096

PATIENT
  Sex: Female

DRUGS (4)
  1. ZOCOR [Concomitant]
     Route: 065
  2. VASOTEC [Concomitant]
     Route: 065
  3. NORVASC [Concomitant]
     Route: 065
  4. FORTEO [Suspect]
     Indication: OSTEOPOROSIS
     Dosage: 20 UG, QD

REACTIONS (5)
  - CEREBROVASCULAR ACCIDENT [None]
  - COGNITIVE DISORDER [None]
  - KNEE ARTHROPLASTY [None]
  - HEART INJURY [None]
  - MOVEMENT DISORDER [None]
